FAERS Safety Report 7578860-5 (Version None)
Quarter: 2011Q2

REPORT INFORMATION
  Report Type: 
  Country: None (occurrence: None)
  Receive Date: 20110628
  Receipt Date: 20110617
  Transmission Date: 20111010
  Serious: Yes (Hospitalization)
  Sender: FDA-Public Use
  Company Number: NL-BAXTER-2011BH020289

PATIENT
  Age: 73 Year
  Sex: Male

DRUGS (8)
  1. GAMMAGARD LIQUID [Suspect]
     Indication: OFF LABEL USE
     Route: 042
     Dates: start: 20110426
  2. GAMMAGARD LIQUID [Suspect]
     Route: 042
     Dates: start: 20110524
  3. GAMMAGARD LIQUID [Suspect]
     Route: 042
     Dates: start: 20080707
  4. GAMMAGARD LIQUID [Suspect]
     Route: 042
     Dates: start: 20110524
  5. GAMMAGARD LIQUID [Suspect]
     Indication: CHRONIC INFLAMMATORY DEMYELINATING POLYRADICULONEUROPATHY
     Route: 042
     Dates: start: 20110426
  6. GAMMAGARD LIQUID [Suspect]
     Route: 042
     Dates: start: 20080707
  7. GAMMAGARD LIQUID [Suspect]
     Route: 042
     Dates: start: 20110524
  8. GAMMAGARD LIQUID [Suspect]
     Route: 042
     Dates: start: 20110524

REACTIONS (1)
  - CEREBRAL HAEMORRHAGE [None]
